FAERS Safety Report 17097627 (Version 1)
Quarter: 2019Q4

REPORT INFORMATION
  Report Type: Spontaneous
  Country: US (occurrence: US)
  Receive Date: 20191105
  Receipt Date: 20191105
  Transmission Date: 20200122
  Serious: Yes (Hospitalization, Other)
  Sender: FDA-Public Use
  Company Number: None

PATIENT
  Age: 19 Year
  Sex: Female
  Weight: 56.25 kg

DRUGS (1)
  1. RANITIDINE. [Suspect]
     Active Substance: RANITIDINE
     Indication: GASTROOESOPHAGEAL REFLUX DISEASE
     Dosage: ?          OTHER FREQUENCY:1-2 DAILY ;?
     Route: 048
     Dates: start: 20190411, end: 20191025

REACTIONS (5)
  - Vomiting [None]
  - Retching [None]
  - Nausea [None]
  - Migraine [None]
  - Hepatic enzyme increased [None]
